FAERS Safety Report 9316452 (Version 1)
Quarter: 2013Q2

REPORT INFORMATION
  Report Type: Spontaneous
  Country: US (occurrence: None)
  Receive Date: 20130528
  Receipt Date: 20130528
  Transmission Date: 20140414
  Serious: Yes (Other)
  Sender: FDA-Public Use
  Company Number: None

PATIENT
  Age: 45 Year
  Sex: Male
  Weight: 130.64 kg

DRUGS (1)
  1. REMICADE [Suspect]
     Dosage: INFUSION EVERY 8 WEEKS.
     Dates: start: 20130113, end: 20130415

REACTIONS (2)
  - Rash generalised [None]
  - Skin discolouration [None]
